FAERS Safety Report 13409252 (Version 1)
Quarter: 2017Q2

REPORT INFORMATION
  Report Type: Spontaneous
  Country: US (occurrence: US)
  Receive Date: 20170406
  Receipt Date: 20170406
  Transmission Date: 20170830
  Serious: Yes (Hospitalization, Disabling)
  Sender: FDA-Public Use
  Company Number: None

PATIENT
  Age: 46 Year
  Sex: Female
  Weight: 69.75 kg

DRUGS (7)
  1. DIAZEPAM. [Concomitant]
     Active Substance: DIAZEPAM
  2. AMITIZA [Concomitant]
     Active Substance: LUBIPROSTONE
  3. TYLENOL (REGULAR STRENGTH) [Concomitant]
  4. ADVIL [Concomitant]
     Active Substance: IBUPROFEN
  5. HYDROMORPHONE 8MG ER [Suspect]
     Active Substance: HYDROMORPHONE HYDROCHLORIDE
     Indication: PAIN
     Dosage: ?          QUANTITY:30 TABLET(S);?
     Route: 048
     Dates: start: 20170309, end: 20170405
  6. OXYCODONE [Concomitant]
     Active Substance: OXYCODONE
  7. TIZANIDINE. [Concomitant]
     Active Substance: TIZANIDINE

REACTIONS (3)
  - Hypotension [None]
  - Pain [None]
  - Insomnia [None]

NARRATIVE: CASE EVENT DATE: 20170309
